FAERS Safety Report 8910895 (Version 1)
Quarter: 2012Q4

REPORT INFORMATION
  Report Type: Spontaneous
  Country: GB (occurrence: None)
  Receive Date: 20121113
  Receipt Date: 20121113
  Transmission Date: 20130627
  Serious: Yes (Hospitalization)
  Sender: FDA-Public Use
  Company Number: 1486690

PATIENT
  Age: 55 Year
  Sex: Female

DRUGS (3)
  1. ATRACURIUM BESYLATE [Suspect]
     Indication: INDUCTION OF ANAESTHESIA
     Dosage: not reported, unknown
  2. FENTANYL [Suspect]
     Indication: INDUCTION OF ANAESTHESIA
     Dosage: not reported, unknwon
  3. PROPOFOL [Suspect]
     Indication: INDUCTION OF ANAESTHESIA

REACTIONS (5)
  - Hypotension [None]
  - Electrocardiogram ST segment elevation [None]
  - Ventricular tachycardia [None]
  - Troponin increased [None]
  - Cardiomyopathy [None]
